FAERS Safety Report 9848535 (Version 1)
Quarter: 2014Q1

REPORT INFORMATION
  Report Type: Spontaneous
  Country: US (occurrence: None)
  Receive Date: 20140124
  Receipt Date: 20140124
  Transmission Date: 20141002
  Serious: Yes (Other)
  Sender: FDA-Public Use
  Company Number: None

PATIENT
  Age: 66 Year
  Sex: Male

DRUGS (1)
  1. INTRON-A (INTERFERON ALFA-2B) [Suspect]
     Indication: MALIGNANT MELANOMA
     Route: 058
     Dates: start: 20140103, end: 20140110

REACTIONS (1)
  - Tremor [None]
